FAERS Safety Report 8953919 (Version 3)
Quarter: 2013Q3

REPORT INFORMATION
  Report Type: Spontaneous
  Country: US (occurrence: US)
  Receive Date: 20121206
  Receipt Date: 20130725
  Transmission Date: 20140515
  Serious: Yes (Other)
  Sender: FDA-Public Use
  Company Number: US-009507513-1212USA001469

PATIENT
  Sex: Female

DRUGS (4)
  1. FELBATOL [Suspect]
     Indication: GRAND MAL CONVULSION
     Dosage: 3600MG(1200MG,3 IN 1 DAY)
     Route: 048
     Dates: start: 1993, end: 201204
  2. FELBAMATE [Suspect]
     Indication: GRAND MAL CONVULSION
     Dosage: 3600 MG(1200MG,3 IN 1 DAY)
     Route: 048
     Dates: start: 201205
  3. CLONAZEPAM [Concomitant]
     Indication: GRAND MAL CONVULSION
     Dosage: 1 MG, QD
     Route: 048
     Dates: start: 2005
  4. SERTRALINE HYDROCHLORIDE [Concomitant]
     Indication: DEPRESSION
     Dosage: 100 MG, QD
     Route: 048
     Dates: start: 2004

REACTIONS (11)
  - Convulsion [Not Recovered/Not Resolved]
  - Atonic seizures [Not Recovered/Not Resolved]
  - Convulsion [Recovered/Resolved]
  - Upper limb fracture [Recovered/Resolved with Sequelae]
  - Joint injury [Recovered/Resolved]
  - Concussion [Recovered/Resolved]
  - Fall [Not Recovered/Not Resolved]
  - Urinary tract infection [Recovered/Resolved]
  - Abdominal pain upper [Unknown]
  - Hypotonia [Unknown]
  - Joint injury [Recovering/Resolving]
